FAERS Safety Report 23920167 (Version 1)
Quarter: 2024Q2

REPORT INFORMATION
  Report Type: Spontaneous
  Country: US (occurrence: None)
  Receive Date: 20240530
  Receipt Date: 20240530
  Transmission Date: 20240716
  Serious: No
  Sender: FDA-Public Use
  Company Number: None

PATIENT

DRUGS (2)
  1. KETOROLAC TROMETHAMINE [Suspect]
     Active Substance: KETOROLAC TROMETHAMINE
     Dosage: 15MG/ML STRENGTH
     Route: 030
  2. PROCHLORPERAZINE EDISYLATE [Suspect]
     Active Substance: PROCHLORPERAZINE EDISYLATE
     Dosage: 10MG/2ML STRENGTH
     Route: 030

REACTIONS (4)
  - Product packaging confusion [None]
  - Product appearance confusion [None]
  - Wrong product stored [None]
  - Product label confusion [None]
